FAERS Safety Report 10032313 (Version 4)
Quarter: 2014Q2

REPORT INFORMATION
  Report Type: Spontaneous
  Country: US (occurrence: US)
  Receive Date: 20140324
  Receipt Date: 20140418
  Transmission Date: 20141212
  Serious: Yes (Hospitalization, Other)
  Sender: FDA-Public Use
  Company Number: US-PFIZER INC-2014079822

PATIENT
  Age: 91 Year
  Sex: Female
  Weight: 54 kg

DRUGS (4)
  1. XALATAN [Suspect]
     Indication: GLAUCOMA
     Dosage: UNK, 1X/DAY
  2. NIFEDIPINE [Suspect]
     Indication: BLOOD PRESSURE
     Dosage: UNK
     Dates: end: 2014
  3. METOPROLOL [Concomitant]
     Indication: HYPERTENSION
     Dosage: UNK
  4. LOSARTAN [Concomitant]
     Indication: HYPERTENSION
     Dosage: UNK

REACTIONS (3)
  - Loss of consciousness [Unknown]
  - Hypertension [Unknown]
  - Off label use [Unknown]
